FAERS Safety Report 6867068-4 (Version None)
Quarter: 2010Q3

REPORT INFORMATION
  Report Type: 
  Country: None (occurrence: None)
  Receive Date: 20100722
  Receipt Date: 20100630
  Transmission Date: 20110219
  Serious: Yes (Hospitalization)
  Sender: FDA-Public Use
  Company Number: A0799391A

PATIENT
  Age: 52 Year
  Sex: Male
  Weight: 122.7 kg

DRUGS (10)
  1. AVANDIA [Suspect]
     Dosage: 4MG PER DAY
     Route: 048
     Dates: start: 20011101, end: 20070601
  2. INSULIN [Concomitant]
  3. DIOVAN [Concomitant]
  4. COREG [Concomitant]
  5. LIPITOR [Concomitant]
  6. ZANTAC [Concomitant]
  7. SALAGEN [Concomitant]
  8. NEURONTIN [Concomitant]
  9. DICLOFENAC [Concomitant]
  10. LUNESTA [Concomitant]

REACTIONS (3)
  - CARDIAC FAILURE [None]
  - CORONARY ARTERY DISEASE [None]
  - MYOCARDIAL INFARCTION [None]
